FAERS Safety Report 4567912-X (Version None)
Quarter: 2005Q1

REPORT INFORMATION
  Report Type: 
  Country: None (occurrence: None)
  Receive Date: 20050202
  Receipt Date: 20050121
  Transmission Date: 20050727
  Serious: Yes (Hospitalization)
  Sender: FDA-Public Use
  Company Number: DE-JNJFOC-20050105420

PATIENT
  Age: 40 Year
  Sex: Male

DRUGS (9)
  1. RISPERDAL CONSTA [Suspect]
     Indication: SCHIZOPHRENIA
     Route: 030
  2. SOLIAN [Suspect]
  3. SOLIAN [Suspect]
  4. SOLIAN [Suspect]
  5. SOLIAN [Suspect]
  6. SOLIAN [Suspect]
     Dosage: 500-800 MG/DAY
  7. SOLIAN [Suspect]
  8. SOLIAN [Suspect]
  9. SOLIAN [Suspect]
     Indication: DRUG USE FOR UNKNOWN INDICATION

REACTIONS (2)
  - DYSARTHRIA [None]
  - SPEECH DISORDER [None]
